FAERS Safety Report 5109701-3 (Version None)
Quarter: 2006Q3

REPORT INFORMATION
  Report Type: 
  Country: None (occurrence: None)
  Receive Date: 20060918
  Receipt Date: 20060901
  Transmission Date: 20061208
  Serious: Yes (Hospitalization, Other)
  Sender: FDA-Public Use
  Company Number: PHBS2006CH13269

PATIENT
  Age: 70 Year
  Sex: Female

DRUGS (14)
  1. ZOMETA [Suspect]
     Indication: HYPERCALCAEMIA OF MALIGNANCY
     Dosage: 4 MG, INTRAVENOUS
     Route: 042
     Dates: start: 20060713
  2. DEXAMETHASONE TAB [Suspect]
     Dosage: 40 MG,
     Dates: start: 20060713, end: 20060714
  3. LASIX [Suspect]
     Dosage: 20 MG, INTRAVENOUS
     Route: 042
     Dates: start: 20060710
  4. MERONEM (MEROPENEM) [Concomitant]
  5. HALDOL [Concomitant]
  6. NEXIUM [Concomitant]
  7. LEVOTHYROXINE SODIUM [Concomitant]
  8. GRANOCYTE      ^CHUGAI^ (LENOGRASTIM) [Concomitant]
  9. KONAKION [Concomitant]
  10. DAFALGAN         (PARACETAMOL) [Concomitant]
  11. ACIDUM FOLICUM STREULI         (FOLIC ACID) [Concomitant]
  12. DISTRANEURIN              (CLOMETHIAZOLE EDISILATE) [Concomitant]
  13. RESYL       (CODEINE PHOSPHATE HEMIHYDRATE, GUAIFENESIN) [Concomitant]
  14. HAEMODIALYSIS    (NO INGREDIENTS/SUBSTANCES) [Concomitant]

REACTIONS (14)
  - AGITATION [None]
  - BRONCHOPNEUMONIA [None]
  - COUGH [None]
  - DRUG INEFFECTIVE [None]
  - GASTROOESOPHAGEAL REFLUX DISEASE [None]
  - GRAND MAL CONVULSION [None]
  - HAEMODIALYSIS [None]
  - HYPOCALCAEMIA [None]
  - HYPOTHYROIDISM [None]
  - MEDICATION ERROR [None]
  - OVERDOSE [None]
  - PAIN [None]
  - RESTLESSNESS [None]
  - SLEEP DISORDER [None]
